FAERS Safety Report 7750393-2 (Version None)
Quarter: 2011Q3

REPORT INFORMATION
  Report Type: 
  Country: None (occurrence: None)
  Receive Date: 20110912
  Receipt Date: 20110831
  Transmission Date: 20111222
  Serious: Yes (Other)
  Sender: FDA-Public Use
  Company Number: PET2-NO-1109S-0004

PATIENT
  Sex: Male

DRUGS (1)
  1. FLUDEOXYGLUCOSE [Suspect]
     Indication: PRODUCT USED FOR UNKNOWN INDICATION
     Dosage: NR, SINGLE DOSE
     Dates: start: 20110101, end: 20110101

REACTIONS (8)
  - DYSPNOEA [None]
  - FALL [None]
  - FAECAL INCONTINENCE [None]
  - PRODUCT CONTAMINATION [None]
  - URINARY INCONTINENCE [None]
  - BRADYCARDIA [None]
  - SYNCOPE [None]
  - PRODUCT PACKAGING ISSUE [None]
